FAERS Safety Report 8255918-9 (Version None)
Quarter: 2012Q1

REPORT INFORMATION
  Report Type: 
  Country: None (occurrence: None)
  Receive Date: 20120322
  Receipt Date: 20120210
  Transmission Date: 20120608
  Serious: Yes (Hospitalization)
  Sender: FDA-Public Use
  Company Number: UTC-013241

PATIENT
  Age: 41 Year
  Sex: Female
  Weight: 62.7 kg

DRUGS (4)
  1. COUMADIN [Concomitant]
  2. TYVASO [Suspect]
     Indication: HYPERTENSION
     Dosage: 216 MCG (54 MCG, 4 IN 1 D), INHALATION
     Route: 055
     Dates: start: 20110107
  3. REVATIO [Concomitant]
  4. LETAIRIS [Concomitant]

REACTIONS (2)
  - UTERINE LEIOMYOMA [None]
  - ANAEMIA [None]
